FAERS Safety Report 9516442 (Version 1)
Quarter: 2013Q3

REPORT INFORMATION
  Report Type: Spontaneous
  Country: GB (occurrence: GB)
  Receive Date: 20130911
  Receipt Date: 20130911
  Transmission Date: 20140515
  Serious: Yes (Other)
  Sender: FDA-Public Use
  Company Number: GB-PFIZER INC-2013259315

PATIENT
  Age: 56 Year
  Sex: Female
  Weight: 59 kg

DRUGS (2)
  1. CHAMPIX [Suspect]
     Indication: SMOKING CESSATION THERAPY
     Dosage: UNK
     Route: 048
     Dates: start: 20130702, end: 20130821
  2. OMEPRAZOLE [Concomitant]
     Dosage: 20 MG, UNK

REACTIONS (9)
  - Pain in jaw [Not Recovered/Not Resolved]
  - Gingival swelling [Recovering/Resolving]
  - Ear pain [Not Recovered/Not Resolved]
  - Gingival pain [Recovering/Resolving]
  - Toothache [Not Recovered/Not Resolved]
  - Dyspepsia [Recovered/Resolved]
  - Nausea [Recovered/Resolved]
  - Abdominal pain upper [Unknown]
  - Abdominal distension [Recovered/Resolved]
